FAERS Safety Report 5450850-8 (Version None)
Quarter: 2007Q3

REPORT INFORMATION
  Report Type: 
  Country: None (occurrence: None)
  Receive Date: 20070913
  Receipt Date: 20070906
  Transmission Date: 20080115
  Serious: Yes (Other)
  Sender: FDA-Public Use
  Company Number: PHBS2007JP14737

PATIENT
  Age: 69 Year
  Sex: Male

DRUGS (4)
  1. DIOVAN [Suspect]
     Route: 048
  2. ATELEC [Concomitant]
     Dosage: 10 MG, UNK
  3. PLAVIX [Concomitant]
  4. NITOROL [Concomitant]

REACTIONS (1)
  - ERYTHEMA MULTIFORME [None]
